FAERS Safety Report 5273241-1 (Version None)
Quarter: 2007Q1

REPORT INFORMATION
  Report Type: 
  Country: None (occurrence: None)
  Receive Date: 20070319
  Receipt Date: 20070228
  Transmission Date: 20070707
  Serious: Yes (Other)
  Sender: FDA-Public Use
  Company Number: 1-14674461

PATIENT
  Age: 22 Year
  Sex: Male
  Weight: 92.5338 kg

DRUGS (1)
  1. SOLODYN [Suspect]
     Indication: ACNE
     Dosage: 1 TABLET DAILY ORALLY
     Route: 048
     Dates: start: 20070214, end: 20070222

REACTIONS (9)
  - APHAGIA [None]
  - EYE SWELLING [None]
  - GASTROOESOPHAGEAL REFLUX DISEASE [None]
  - ODYNOPHAGIA [None]
  - PHARYNGEAL OEDEMA [None]
  - PRODUCTIVE COUGH [None]
  - RASH [None]
  - URTICARIA GENERALISED [None]
  - VOMITING [None]
